FAERS Safety Report 6026651-9 (Version None)
Quarter: 2008Q4

REPORT INFORMATION
  Report Type: 
  Country: None (occurrence: None)
  Receive Date: 20081231
  Receipt Date: 20081216
  Transmission Date: 20090506
  Serious: Yes (Hospitalization)
  Sender: FDA-Public Use
  Company Number: KV200801164

PATIENT
  Age: 70 Year
  Sex: Female
  Weight: 86.6 kg

DRUGS (1)
  1. ISOSORBIDE MONONITRATE [Suspect]
     Indication: ANGINA PECTORIS
     Dosage: 60 MG, QD, ORAL
     Route: 048
     Dates: start: 20030101

REACTIONS (6)
  - DIPLOPIA [None]
  - DIZZINESS [None]
  - FOOT FRACTURE [None]
  - PRODUCT QUALITY ISSUE [None]
  - SYNCOPE [None]
  - VISION BLURRED [None]
